FAERS Safety Report 10024262 (Version 1)
Quarter: 2014Q1

REPORT INFORMATION
  Report Type: Spontaneous
  Country: US (occurrence: None)
  Receive Date: 20140304
  Receipt Date: 20140304
  Transmission Date: 20141002
  Serious: Yes (Hospitalization)
  Sender: FDA-Public Use
  Company Number: RB-55293-2013

PATIENT
  Age: 23 Year
  Sex: Male

DRUGS (1)
  1. SUBOXONE [Suspect]
     Indication: PRODUCT USED FOR UNKNOWN INDICATION
     Dosage: (4 MG UNKNOWN)?
     Dates: start: 2013

REACTIONS (2)
  - Dyspnoea [None]
  - Chest pain [None]
